FAERS Safety Report 8048957 (Version 3)
Quarter: 2013Q1

REPORT INFORMATION
  Report Type: Spontaneous
  Country: US (occurrence: US)
  Receive Date: 20110722
  Receipt Date: 20130318
  Transmission Date: 20140127
  Serious: Yes (Other)
  Sender: FDA-Public Use
  Company Number: US-US-EMD SERONO, INC.-7071121

PATIENT
  Sex: Female
  Weight: 54 kg

DRUGS (5)
  1. REBIF [Suspect]
     Indication: MULTIPLE SCLEROSIS
     Route: 058
     Dates: start: 20110202
  2. DILANTIN [Concomitant]
     Indication: CONVULSION
  3. KEPPRA [Concomitant]
     Indication: CONVULSION
  4. GABAPENTIN [Concomitant]
     Indication: MUSCLE SPASMS
  5. LEVOTHYROXINE [Concomitant]
     Indication: THYROID DISORDER

REACTIONS (9)
  - Convulsion [Not Recovered/Not Resolved]
  - Anticonvulsant drug level below therapeutic [Unknown]
  - Loss of consciousness [Recovering/Resolving]
  - Laceration [Recovering/Resolving]
  - Diplopia [Unknown]
  - Bladder disorder [Unknown]
  - Urinary incontinence [Unknown]
  - Muscle spasms [Recovering/Resolving]
  - Malaise [Unknown]
